FAERS Safety Report 15151771 (Version 2)
Quarter: 2018Q3

REPORT INFORMATION
  Report Type: Spontaneous
  Country: US (occurrence: US)
  Receive Date: 20180716
  Receipt Date: 20180817
  Transmission Date: 20181010
  Serious: Yes (Hospitalization)
  Sender: FDA-Public Use
  Company Number: US-TEVA-2018-US-926544

PATIENT
  Age: 21 Year
  Sex: Female

DRUGS (3)
  1. TOPIRAMATE. [Interacting]
     Active Substance: TOPIRAMATE
     Indication: EPILEPSY
     Route: 065
  2. VALPROIC ACID. [Suspect]
     Active Substance: VALPROIC ACID
     Indication: EPILEPSY
     Route: 065
  3. LEVETIRACETAM. [Concomitant]
     Active Substance: LEVETIRACETAM
     Indication: EPILEPSY
     Route: 065

REACTIONS (3)
  - Drug interaction [Recovering/Resolving]
  - Respiratory failure [Recovered/Resolved]
  - Hyperammonaemic encephalopathy [Recovered/Resolved]
